FAERS Safety Report 6636028-0 (Version None)
Quarter: 2010Q1

REPORT INFORMATION
  Report Type: 
  Country: None (occurrence: None)
  Receive Date: 20100316
  Receipt Date: 20100303
  Transmission Date: 20100710
  Serious: Yes (Hospitalization, Disabling, Other)
  Sender: FDA-Public Use
  Company Number: PHHY2010JP12925

PATIENT
  Age: 60 Year
  Sex: Male

DRUGS (3)
  1. CYCLOSPORINE [Suspect]
     Indication: KERATOPLASTY
     Dosage: 150 MG/DAY
     Route: 048
     Dates: start: 19840101
  2. CYCLOSPORINE [Suspect]
     Indication: PROPHYLAXIS AGAINST TRANSPLANT REJECTION
  3. PREDNISOLONE [Suspect]
     Indication: KERATOPLASTY
     Dosage: 5 MG, UNK
     Route: 048
     Dates: start: 19840101

REACTIONS (13)
  - ALTERED STATE OF CONSCIOUSNESS [None]
  - AMNESIA [None]
  - CENTRAL NERVOUS SYSTEM LESION [None]
  - CSF VIRUS IDENTIFIED [None]
  - DIABETES MELLITUS [None]
  - ENCEPHALITIS HERPES [None]
  - EYE PAIN [None]
  - HALLUCINATION [None]
  - HERPES SIMPLEX OPHTHALMIC [None]
  - LACRIMAL DISORDER [None]
  - PSYCHOPATHIC PERSONALITY [None]
  - SOMNOLENCE [None]
  - VISUAL ACUITY REDUCED [None]
